FAERS Safety Report 5048288-0 (Version None)
Quarter: 2006Q3

REPORT INFORMATION
  Report Type: 
  Country: None (occurrence: None)
  Receive Date: 20060711
  Receipt Date: 20060530
  Transmission Date: 20061208
  Serious: Yes (Death, Hospitalization, Other)
  Sender: FDA-Public Use
  Company Number: HQWYE578131MAY06

PATIENT
  Sex: Male
  Weight: 71 kg

DRUGS (7)
  1. ENBREL [Suspect]
     Indication: RHEUMATOID ARTHRITIS
     Route: 058
     Dates: start: 20060509, end: 20060526
  2. NORVASC [Concomitant]
     Indication: HYPERTENSION
     Route: 048
     Dates: start: 20050628
  3. NABOAL - SLOW RELEASE [Concomitant]
     Dosage: UNSPECIFIED DOSE
     Route: 048
     Dates: start: 20060411
  4. OLMETEC [Concomitant]
     Indication: HYPERTENSION
     Route: 065
     Dates: start: 20050628
  5. PREDONINE [Concomitant]
     Dosage: UNSPECIFIED DOSE
     Route: 065
  6. RHEUMATREX [Concomitant]
     Route: 048
     Dates: start: 20060221
  7. SELBEX [Concomitant]
     Indication: GASTRITIS
     Route: 048
     Dates: start: 20050601

REACTIONS (6)
  - ALANINE AMINOTRANSFERASE INCREASED [None]
  - ASPARTATE AMINOTRANSFERASE INCREASED [None]
  - PNEUMOCYSTIS JIROVECI PNEUMONIA [None]
  - PNEUMONIA BACTERIAL [None]
  - SEPSIS [None]
  - WHITE BLOOD CELL COUNT INCREASED [None]
